FAERS Safety Report 10839085 (Version 1)
Quarter: 2015Q1

REPORT INFORMATION
  Report Type: Spontaneous
  Country: CN (occurrence: None)
  Receive Date: 20150218
  Receipt Date: 20150218
  Transmission Date: 20150721
  Serious: Yes (Congenital Anomaly)
  Sender: FDA-Public Use
  Company Number: 8011823

PATIENT

DRUGS (1)
  1. EUTHYROX (LEVOTHYROXINE SODIUM) (LEVOTHYROXINE SODIUM) [Suspect]
     Active Substance: LEVOTHYROXINE SODIUM
     Indication: PRODUCT USED FOR UNKNOWN INDICATION
     Dosage: PRODUCT TAKEN BY MOTHER

REACTIONS (3)
  - Haemangioma [None]
  - Maternal drugs affecting foetus [None]
  - Congenital anomaly [None]
